FAERS Safety Report 5108148-3 (Version None)
Quarter: 2006Q3

REPORT INFORMATION
  Report Type: 
  Country: None (occurrence: None)
  Receive Date: 20060919
  Receipt Date: 20060914
  Transmission Date: 20061208
  Serious: Yes (Life-Threatening)
  Sender: FDA-Public Use
  Company Number: FR-GLAXOSMITHKLINE-B0438444A

PATIENT
  Age: 44 Year
  Sex: Female

DRUGS (2)
  1. AUGMENTIN '125' [Suspect]
     Dosage: 2G PER DAY
     Route: 042
     Dates: start: 20060617, end: 20060617
  2. CARBOCAINE [Suspect]
     Dosage: 40ML SINGLE DOSE
     Route: 030
     Dates: start: 20060617, end: 20060617

REACTIONS (5)
  - BLOOD PRESSURE DECREASED [None]
  - CIRCULATORY COLLAPSE [None]
  - FACE OEDEMA [None]
  - LARYNGEAL OEDEMA [None]
  - TACHYCARDIA [None]
